FAERS Safety Report 14511393 (Version 1)
Quarter: 2018Q1

REPORT INFORMATION
  Report Type: Report from Study
  Country: DE (occurrence: DE)
  Receive Date: 20180209
  Receipt Date: 20180209
  Transmission Date: 20180509
  Serious: Yes (Life-Threatening, Hospitalization)
  Sender: FDA-Public Use
  Company Number: DE-TEVA-2018-DE-855461

PATIENT
  Age: 41 Year
  Sex: Female

DRUGS (2)
  1. QUETIAPINE. [Suspect]
     Active Substance: QUETIAPINE
     Indication: PSYCHOTIC DISORDER
     Route: 065
  2. SERTINDOLE [Suspect]
     Active Substance: SERTINDOLE
     Indication: PSYCHOTIC DISORDER
     Route: 065

REACTIONS (3)
  - Ventricular tachycardia [None]
  - Long QT syndrome [Recovering/Resolving]
  - Ventricular tachycardia [Recovering/Resolving]
